FAERS Safety Report 18717728 (Version 1)
Quarter: 2021Q1

REPORT INFORMATION
  Report Type: Spontaneous
  Country: US (occurrence: US)
  Receive Date: 20210107
  Receipt Date: 20210107
  Transmission Date: 20210419
  Serious: Yes (Other)
  Sender: FDA-Public Use
  Company Number: None

PATIENT
  Age: 70 Year
  Sex: Male
  Weight: 76.4 kg

DRUGS (53)
  1. IPRATROPIUM [Concomitant]
     Active Substance: IPRATROPIUM
  2. LORAZEPAM. [Concomitant]
     Active Substance: LORAZEPAM
  3. OXYCODONE [Concomitant]
     Active Substance: OXYCODONE
  4. CHLORHEXIDINE GLUCONATE ORAL RINSE 0.12% [Suspect]
     Active Substance: CHLORHEXIDINE GLUCONATE
     Indication: ANTIBIOTIC PROPHYLAXIS
     Route: 002
     Dates: start: 20201006, end: 20201117
  5. ARTIFICIAL TEARS [Concomitant]
     Active Substance: GLYCERIN\HYPROMELLOSES\POLYETHYLENE GLYCOL 400
  6. EPOPROSTEOL [Concomitant]
  7. K PHOS/NAPHOS [Concomitant]
  8. POLYERHLENE GLYC [Concomitant]
  9. PROPOFOL. [Concomitant]
     Active Substance: PROPOFOL
  10. VASOPRESSIN. [Concomitant]
     Active Substance: VASOPRESSIN
  11. ACETAMINPHEN [Concomitant]
  12. CEFTAZIDIME. [Concomitant]
     Active Substance: CEFTAZIDIME
  13. DEXMEDETOMIDINE/NS [Concomitant]
  14. FENTANYL. [Concomitant]
     Active Substance: FENTANYL
  15. LISINOPRIL. [Concomitant]
     Active Substance: LISINOPRIL
  16. MEROPENEM. [Concomitant]
     Active Substance: MEROPENEM
  17. NICARDIOPINE [Concomitant]
  18. PANTOPRAZOLE [Concomitant]
     Active Substance: PANTOPRAZOLE
  19. THIAMINE. [Concomitant]
     Active Substance: THIAMINE
  20. ALBUTEROL. [Concomitant]
     Active Substance: ALBUTEROL
  21. CLONIDINE. [Concomitant]
     Active Substance: CLONIDINE
  22. D10W [Concomitant]
     Active Substance: DEXTROSE\WATER
  23. DOBUTAMINE/D5W [Concomitant]
  24. METONIDAZOLE [Concomitant]
  25. MIDAZOLAM/NS [Concomitant]
  26. NOREPINEPHRINE. [Concomitant]
     Active Substance: NOREPINEPHRINE
  27. POTASSIUM CHLROIDE [Concomitant]
  28. ALTEPLASE CATHFLO [Concomitant]
  29. CISATRACURIUM/NS [Concomitant]
  30. HEPARIN [Concomitant]
     Active Substance: HEPARIN SODIUM
  31. NO DRUG NAME [Concomitant]
  32. LIDOCAINE. [Concomitant]
     Active Substance: LIDOCAINE
  33. MAGNESIUM [Concomitant]
     Active Substance: MAGNESIUM
  34. SERTRALINE [Concomitant]
     Active Substance: SERTRALINE HYDROCHLORIDE
  35. SODIUM CHLORIDE. [Concomitant]
     Active Substance: SODIUM CHLORIDE
  36. CHLORHEXIDINE [Concomitant]
     Active Substance: CHLORHEXIDINE
  37. FUROSEMIDE. [Concomitant]
     Active Substance: FUROSEMIDE
  38. INSULIN LISPRO [Concomitant]
     Active Substance: INSULIN LISPRO
  39. LABETALO [Concomitant]
     Active Substance: LABETALOL HYDROCHLORIDE
  40. MICAFUNGIN. [Concomitant]
     Active Substance: MICAFUNGIN SODIUM
  41. MULTIVITAMIN [Concomitant]
     Active Substance: VITAMINS
  42. PHENYLEPHRINE [Concomitant]
     Active Substance: PHENYLEPHRINE HYDROCHLORIDE
  43. REMDESIVIR. [Concomitant]
     Active Substance: REMDESIVIR
  44. VAMCOMYCIN [Concomitant]
     Active Substance: VANCOMYCIN
  45. DOCUSATE SOD [Concomitant]
  46. SENNA [Concomitant]
     Active Substance: SENNA LEAF\SENNOSIDES\SENNOSIDES A AND B
  47. CEFEPIME [Concomitant]
     Active Substance: CEFEPIME HYDROCHLORIDE
  48. DEXAMETHASONE. [Concomitant]
     Active Substance: DEXAMETHASONE
  49. ETOMIDATE. [Concomitant]
     Active Substance: ETOMIDATE
  50. FAMOTIDINE. [Concomitant]
     Active Substance: FAMOTIDINE
  51. LACTATED RINGERS SOLUTION [Concomitant]
     Active Substance: CALCIUM CHLORIDE\POTASSIUM CHLORIDE\SODIUM CHLORIDE\SODIUM LACTATE
  52. MUPIROCIN. [Concomitant]
     Active Substance: MUPIROCIN
  53. ROCURONIUM [Concomitant]
     Active Substance: ROCURONIUM BROMIDE

REACTIONS (2)
  - Recalled product administered [None]
  - Product contamination microbial [None]

NARRATIVE: CASE EVENT DATE: 20201109
